FAERS Safety Report 17187782 (Version 4)
Quarter: 2021Q1

REPORT INFORMATION
  Report Type: Report from Study
  Country: DE (occurrence: DE)
  Receive Date: 20191221
  Receipt Date: 20210127
  Transmission Date: 20210419
  Serious: Yes (Other)
  Sender: FDA-Public Use
  Company Number: DE-SUN PHARMACEUTICAL INDUSTRIES LTD-2019RR-231376

PATIENT
  Age: 69 Year
  Sex: Male

DRUGS (5)
  1. L?TYROX [Concomitant]
     Indication: PRE-EXISTING DISEASE
     Dosage: 75 MICROGRAM, DAILY
     Route: 048
  2. ENALAPRIL MALEAT [Concomitant]
     Active Substance: ENALAPRIL MALEATE
     Indication: PRE-EXISTING DISEASE
     Dosage: 20 MILLIGRAM, DAILY
     Route: 048
  3. LERCANIDIPIN HYDROCHLORID [Concomitant]
     Indication: PRE-EXISTING DISEASE
     Dosage: 10 MILLIGRAM, DAILY
     Route: 048
  4. ODOMZO [Suspect]
     Active Substance: SONIDEGIB
     Indication: BASAL CELL CARCINOMA
     Dosage: 200 MILLIGRAM, DAILY
     Route: 048
     Dates: start: 20190918, end: 20191107
  5. METFORMIN [Concomitant]
     Active Substance: METFORMIN HYDROCHLORIDE
     Indication: PRE-EXISTING DISEASE
     Dosage: 1000 MILLIGRAM, DAILY
     Route: 048

REACTIONS (1)
  - Squamous cell carcinoma [Not Recovered/Not Resolved]

NARRATIVE: CASE EVENT DATE: 20190918
